FAERS Safety Report 24543172 (Version 1)
Quarter: 2024Q4

REPORT INFORMATION
  Report Type: Spontaneous
  Country: GB (occurrence: GB)
  Receive Date: 20241024
  Receipt Date: 20241024
  Transmission Date: 20250115
  Serious: Yes (Other)
  Sender: RANBAXY
  Company Number: GB-SUN PHARMACEUTICAL INDUSTRIES LTD-2024RR-474511

PATIENT
  Age: 63 Year
  Sex: Male
  Weight: 85 kg

DRUGS (8)
  1. CIPROFLOXACIN [Suspect]
     Active Substance: CIPROFLOXACIN
     Indication: Adverse drug reaction
     Dosage: 500 MILLIGRAM
     Route: 065
     Dates: start: 20240507, end: 20240530
  2. GENERICS UK ESOMEPRAZOLE [Concomitant]
     Indication: Hiatus hernia
     Dosage: UNK
     Route: 065
     Dates: start: 20130606
  3. FINASTERIDE [Concomitant]
     Active Substance: FINASTERIDE
     Indication: Prostate tenderness
     Dosage: UNK
     Route: 065
     Dates: start: 20110211
  4. LIPITOR [Concomitant]
     Active Substance: ATORVASTATIN CALCIUM
     Indication: Blood cholesterol increased
     Dosage: UNK
     Route: 065
     Dates: start: 20230222
  5. OZEMPIC [Concomitant]
     Active Substance: SEMAGLUTIDE
     Indication: Diabetes mellitus
     Dosage: UNK
     Route: 065
     Dates: start: 20231202
  6. LEVEMIR [Concomitant]
     Active Substance: INSULIN DETEMIR
     Indication: Diabetes mellitus
     Route: 065
     Dates: start: 20191214
  7. METHYLPHENIDATE [Concomitant]
     Active Substance: METHYLPHENIDATE
     Indication: Attention deficit hyperactivity disorder
     Route: 065
     Dates: start: 20201029
  8. HEALTHY ORIGINS VITAMIN D3 [Concomitant]
     Indication: Product used for unknown indication
     Route: 065
     Dates: start: 20170110

REACTIONS (2)
  - Medication error [Unknown]
  - Tendonitis [Not Recovered/Not Resolved]

NARRATIVE: CASE EVENT DATE: 20241001
